FAERS Safety Report 17568795 (Version 1)
Quarter: 2020Q1

REPORT INFORMATION
  Report Type: Spontaneous
  Country: GB (occurrence: GB)
  Receive Date: 20200321
  Receipt Date: 20200321
  Transmission Date: 20200409
  Serious: Yes (Other)
  Sender: FDA-Public Use
  Company Number: GB-TEVA-2020-GB-1204937

PATIENT
  Age: 10 Year
  Sex: Male
  Weight: 43 kg

DRUGS (3)
  1. SUMATRIPTAN SUCCINATE. [Suspect]
     Active Substance: SUMATRIPTAN SUCCINATE
     Indication: MIGRAINE
     Dosage: 50 MG
     Route: 048
     Dates: start: 20200227, end: 20200227
  2. PARACETAMOL [Concomitant]
     Active Substance: ACETAMINOPHEN
  3. CALPOL [Concomitant]
     Active Substance: ACETAMINOPHEN

REACTIONS (1)
  - Arthralgia [Recovering/Resolving]

NARRATIVE: CASE EVENT DATE: 20200227
